FAERS Safety Report 5215995-6 (Version None)
Quarter: 2007Q1

REPORT INFORMATION
  Report Type: 
  Country: None (occurrence: None)
  Receive Date: 20070118
  Receipt Date: 20070110
  Transmission Date: 20070707
  Serious: Yes (Other)
  Sender: FDA-Public Use
  Company Number: 233687

PATIENT
  Age: 72 Year
  Sex: Female
  Weight: 49.9 kg

DRUGS (1)
  1. RITUXAN [Suspect]
     Indication: RHEUMATOID ARTHRITIS
     Dates: start: 20060711

REACTIONS (3)
  - ASTHMA [None]
  - BRONCHITIS [None]
  - NASOPHARYNGITIS [None]
